FAERS Safety Report 11288725 (Version 1)
Quarter: 2015Q3

REPORT INFORMATION
  Report Type: Spontaneous
  Country: US (occurrence: US)
  Receive Date: 20150721
  Receipt Date: 20150721
  Transmission Date: 20151125
  Serious: No
  Sender: FDA-Public Use
  Company Number: US-UNITED THERAPEUTICS-UNT-2015-003865

PATIENT
  Age: 1 Month
  Sex: Male
  Weight: 6.35 kg

DRUGS (1)
  1. REMODULIN [Suspect]
     Active Substance: TREPROSTINIL
     Indication: PULMONARY HYPERTENSION
     Dosage: 0.020 ?G/KG/MIN,CONTINUING
     Route: 058
     Dates: start: 20141210

REACTIONS (7)
  - Hypersomnia [Unknown]
  - Cough [Recovered/Resolved]
  - Teething [Not Recovered/Not Resolved]
  - Infusion site rash [Unknown]
  - Infusion site pain [Unknown]
  - Infusion site nodule [Unknown]
  - Skin infection [Recovering/Resolving]

NARRATIVE: CASE EVENT DATE: 201412
